FAERS Safety Report 13880127 (Version 1)
Quarter: 2017Q3

REPORT INFORMATION
  Report Type: Spontaneous
  Country: US (occurrence: US)
  Receive Date: 20170818
  Receipt Date: 20170818
  Transmission Date: 20171127
  Serious: Yes (Hospitalization)
  Sender: FDA-Public Use
  Company Number: US-ROCHE-1980301

PATIENT
  Age: 53 Year
  Sex: Male
  Weight: 80.81 kg

DRUGS (3)
  1. XELODA [Suspect]
     Active Substance: CAPECITABINE
     Indication: NEOPLASM MALIGNANT
     Dosage: 6 TABLETS A DAY
     Route: 065
     Dates: start: 20160525
  2. XELODA [Suspect]
     Active Substance: CAPECITABINE
     Dosage: 5 TABLETS A DAY
     Route: 065
     Dates: start: 20170208
  3. TEMOZOLOMIDE. [Concomitant]
     Active Substance: TEMOZOLOMIDE
     Route: 065
     Dates: start: 20160525

REACTIONS (7)
  - Dyspnoea [Recovered/Resolved]
  - Platelet count decreased [Recovered/Resolved]
  - Blister [Recovered/Resolved]
  - Blood count abnormal [Recovered/Resolved]
  - Chest pain [Recovered/Resolved]
  - Vomiting [Recovered/Resolved]
  - Erythema [Recovered/Resolved]

NARRATIVE: CASE EVENT DATE: 20160928
